FAERS Safety Report 10012748 (Version 2)
Quarter: 2014Q3

REPORT INFORMATION
  Report Type: Spontaneous
  Country: FR (occurrence: FR)
  Receive Date: 20140314
  Receipt Date: 20140711
  Transmission Date: 20150326
  Serious: Yes (Other)
  Sender: FDA-Public Use
  Company Number: FR-ABBVIE-14P-056-1210907-00

PATIENT
  Age: 38 Year
  Sex: Female
  Weight: 93 kg

DRUGS (1)
  1. HUMIRA [Suspect]
     Active Substance: ADALIMUMAB
     Indication: PSORIASIS
     Route: 058
     Dates: start: 201203

REACTIONS (4)
  - Abdominal pain lower [Recovering/Resolving]
  - Endometriosis [Unknown]
  - Dermal cyst [Unknown]
  - Granuloma [Unknown]

NARRATIVE: CASE EVENT DATE: 201304
